FAERS Safety Report 5635800-3 (Version None)
Quarter: 2008Q1

REPORT INFORMATION
  Report Type: 
  Country: None (occurrence: None)
  Receive Date: 20080221
  Receipt Date: 20080205
  Transmission Date: 20080703
  Serious: Yes (Death)
  Sender: FDA-Public Use
  Company Number: 002#8#2007-00380

PATIENT
  Age: 77 Year
  Sex: Female

DRUGS (9)
  1. FAMOTIDINE [Suspect]
     Indication: CLOSTRIDIAL INFECTION
  2. CEFUROXIME [Suspect]
     Indication: CHOLECYSTITIS
  3. GENTAMICIN [Suspect]
     Indication: CHOLECYSTITIS
  4. AMIKACIN [Suspect]
  5. CEFAMANDOLE [Suspect]
     Indication: CHOLECYSTITIS
  6. CEFTRIAXONE [Suspect]
  7. VANCOMYCIN [Concomitant]
  8. METRONIDAZOLE HCL [Concomitant]
  9. FLUCONAZOLE [Concomitant]

REACTIONS (21)
  - ABDOMINAL DISTENSION [None]
  - ACIDOSIS [None]
  - APNOEA [None]
  - BLOOD CREATINE INCREASED [None]
  - CARDIOGENIC SHOCK [None]
  - CLOSTRIDIUM DIFFICILE COLITIS [None]
  - CREPITATIONS [None]
  - DEHYDRATION [None]
  - DYSPNOEA [None]
  - GENERAL PHYSICAL HEALTH DETERIORATION [None]
  - HEADACHE [None]
  - HEART RATE INCREASED [None]
  - HYPOTENSION [None]
  - LUNG DISORDER [None]
  - LYMPHOPENIA [None]
  - MENTAL STATUS CHANGES [None]
  - NAUSEA [None]
  - NO THERAPEUTIC RESPONSE [None]
  - PSEUDOMEMBRANOUS COLITIS [None]
  - RESPIRATORY RATE INCREASED [None]
  - URINE OUTPUT DECREASED [None]
